FAERS Safety Report 8772772 (Version 3)
Quarter: 2012Q4

REPORT INFORMATION
  Report Type: 
  Country: US (occurrence: US)
  Receive Date: 20120907
  Receipt Date: 20121203
  Transmission Date: 20130627
  Serious: Yes (Hospitalization)
  Sender: FDA-Public Use
  Company Number: US-PFIZER INC-2012217977

PATIENT
  Age: 23 Year
  Sex: Male
  Weight: 122 kg

DRUGS (2)
  1. EFFEXOR XR [Suspect]
     Indication: MOOD SWINGS
     Dosage: 150 mg, daily
     Dates: start: 201207, end: 20120904
  2. DILANTIN [Suspect]
     Dosage: UNK

REACTIONS (1)
  - Convulsion [Unknown]
